FAERS Safety Report 21435912 (Version 2)
Quarter: 2023Q1

REPORT INFORMATION
  Report Type: Spontaneous
  Country: US (occurrence: US)
  Receive Date: 20221010
  Receipt Date: 20230105
  Transmission Date: 20230417
  Serious: No
  Sender: FDA-Public Use
  Company Number: US-GSK-US2022AMR142016

PATIENT
  Sex: Female

DRUGS (4)
  1. FLOLAN [Suspect]
     Active Substance: EPOPROSTENOL SODIUM
     Indication: Pulmonary arterial hypertension
     Dosage: 178 NG/KG/MIN, CO VIAL 1.5 MG, PUMP 92 ML/DAY
     Dates: start: 20061206
  2. FLOLAN [Suspect]
     Active Substance: EPOPROSTENOL SODIUM
     Indication: Pulmonary arterial hypertension
     Dosage: 178 NG/KG/MIN, CO, CONCENTRATION: 210,000 NG/ML PUMP RATE: 92 ML/DAY VIAL STRENGTH: 1.5 MG
     Dates: start: 20061206
  3. GLYCINE\MANNITOL\SODIUM CHLORIDE [Suspect]
     Active Substance: GLYCINE\MANNITOL\SODIUM CHLORIDE
     Indication: Vehicle solution use
     Dosage: UNK
     Dates: start: 20160802
  4. TADALAFIL [Concomitant]
     Active Substance: TADALAFIL
     Indication: Product used for unknown indication
     Dosage: UNK

REACTIONS (3)
  - Pallor [Recovered/Resolved]
  - Catheter site related reaction [Recovered/Resolved]
  - Intentional product use issue [Unknown]
